FAERS Safety Report 11196016 (Version 1)
Quarter: 2015Q2

REPORT INFORMATION
  Report Type: Spontaneous
  Country: US (occurrence: US)
  Receive Date: 20150617
  Receipt Date: 20150617
  Transmission Date: 20150821
  Serious: Yes (Death, Hospitalization)
  Sender: FDA-Public Use
  Company Number: US-ENDO PHARMACEUTICALS INC.-201407116

PATIENT
  Age: 53 Year
  Sex: Male
  Weight: 102.15 kg

DRUGS (3)
  1. TESTOSTERONE CYPIONATE. [Suspect]
     Active Substance: TESTOSTERONE CYPIONATE
     Indication: ANDROGEN REPLACEMENT THERAPY
     Route: 065
     Dates: start: 2008, end: 2010
  2. DEPO-TESTOSTERONE [Suspect]
     Active Substance: TESTOSTERONE CYPIONATE
     Indication: ANDROGEN REPLACEMENT THERAPY
     Route: 065
     Dates: start: 2008, end: 2010
  3. TESTIM [Suspect]
     Active Substance: TESTOSTERONE
     Indication: ANDROGEN REPLACEMENT THERAPY
     Route: 062
     Dates: start: 2008, end: 2008

REACTIONS (6)
  - Cardio-respiratory arrest [Fatal]
  - Wound dehiscence [Recovered/Resolved]
  - Hypoxic-ischaemic encephalopathy [Not Recovered/Not Resolved]
  - Coronary artery aneurysm [Not Recovered/Not Resolved]
  - Respiratory failure [Recovered/Resolved]
  - Coronary artery disease [Fatal]

NARRATIVE: CASE EVENT DATE: 20090107
